FAERS Safety Report 10150748 (Version 1)
Quarter: 2014Q2

REPORT INFORMATION
  Report Type: Spontaneous
  Country: US (occurrence: US)
  Receive Date: 20140502
  Receipt Date: 20140502
  Transmission Date: 20141212
  Serious: No
  Sender: FDA-Public Use
  Company Number: US-ASTRAZENECA-2013SE30980

PATIENT
  Sex: Female

DRUGS (2)
  1. PRILOSEC OTC [Suspect]
     Indication: HIATUS HERNIA
     Dosage: 1 DF THREE TIMES A DAY PRE MEALS
     Route: 048
  2. PRILOSEC OTC [Suspect]
     Indication: THROAT IRRITATION
     Dosage: 1 DF THREE TIMES A DAY PRE MEALS
     Route: 048

REACTIONS (4)
  - Nausea [Recovered/Resolved]
  - Inappropriate schedule of drug administration [Unknown]
  - Off label use [Unknown]
  - Drug ineffective [Unknown]
